FAERS Safety Report 4866608-4 (Version None)
Quarter: 2005Q4

REPORT INFORMATION
  Report Type: 
  Country: None (occurrence: None)
  Receive Date: 20051227
  Receipt Date: 20051216
  Transmission Date: 20060501
  Serious: Yes (Hospitalization)
  Sender: FDA-Public Use
  Company Number: JP-JNJFOC-20041008373

PATIENT
  Sex: Female
  Weight: 43 kg

DRUGS (22)
  1. REMICADE [Suspect]
     Route: 042
  2. REMICADE [Suspect]
     Indication: RHEUMATOID ARTHRITIS
     Route: 042
  3. RHEUMATREX [Suspect]
  4. RHEUMATREX [Suspect]
  5. RHEUMATREX [Suspect]
     Indication: RHEUMATOID ARTHRITIS
  6. PREDONIN [Concomitant]
     Indication: RHEUMATOID ARTHRITIS
     Route: 048
  7. SOLU-MEDROL [Concomitant]
     Indication: RHEUMATOID ARTHRITIS
  8. AZULFIDINE [Concomitant]
     Indication: RHEUMATOID ARTHRITIS
     Route: 048
  9. LOXONIN [Concomitant]
     Indication: RHEUMATOID ARTHRITIS
     Route: 048
  10. OPALMON [Concomitant]
     Route: 048
  11. BENET [Concomitant]
     Route: 048
  12. NEUROTROPIN [Concomitant]
     Route: 048
  13. MAGLAX [Concomitant]
     Route: 048
  14. TAKEPRON [Concomitant]
     Route: 048
  15. CEFAMIN [Concomitant]
     Route: 042
  16. MEROPIN [Concomitant]
     Route: 042
  17. DENOSINE [Concomitant]
     Route: 042
  18. PRODIF [Concomitant]
     Route: 042
  19. ALLEGRA [Concomitant]
     Route: 048
  20. CLARITHROMYCIN [Concomitant]
     Route: 048
  21. PL [Concomitant]
     Route: 048
  22. ADRENAL HORMONE PREPARATIONS [Concomitant]
     Indication: RHEUMATOID ARTHRITIS

REACTIONS (1)
  - PNEUMOCYSTIS JIROVECI PNEUMONIA [None]
